FAERS Safety Report 8620456-8 (Version None)
Quarter: 2012Q3

REPORT INFORMATION
  Report Type: 
  Country: None (occurrence: None)
  Receive Date: 20120824
  Receipt Date: 20120820
  Transmission Date: 20120928
  Serious: Yes (Other)
  Sender: FDA-Public Use
  Company Number: US-PFIZER INC-2012204919

PATIENT
  Age: 54 Year
  Sex: Female
  Weight: 109 kg

DRUGS (10)
  1. EFFEXOR [Suspect]
     Indication: DEPRESSION
     Dosage: 150 MG, UNK
     Route: 048
     Dates: start: 20040101
  2. CALCIUM [Concomitant]
     Dosage: UNK
  3. OMEPRAZOLE [Concomitant]
     Indication: GASTROOESOPHAGEAL REFLUX DISEASE
     Dosage: 40 MG, UNK
  4. EFFEXOR [Suspect]
     Dosage: 300 MG (TWO TABLETS OF 150MG), 2X/DAY
     Route: 048
  5. HYDROCHLOROTHIAZIDE [Concomitant]
     Indication: HYPERTENSION
     Dosage: 20 MG, DAILY
  6. ASPIRIN [Concomitant]
     Dosage: 81 MG, DAILY
  7. EFFEXOR [Suspect]
     Dosage: 300 MG (TWO TABLETS OF 150MG), DAILY
     Route: 048
  8. VENLAFAXINE HCL [Suspect]
     Indication: DEPRESSION
     Dosage: UNK
  9. VITAMIN D [Concomitant]
     Dosage: UNK
  10. COZAAR [Concomitant]
     Indication: HYPERTENSION
     Dosage: 100 MG, DAILY

REACTIONS (5)
  - DIABETES MELLITUS [None]
  - THYROID DISORDER [None]
  - AGITATION [None]
  - DRUG INEFFECTIVE [None]
  - BLOOD CHOLESTEROL ABNORMAL [None]
